FAERS Safety Report 9779244 (Version 4)
Quarter: 2014Q1

REPORT INFORMATION
  Report Type: Spontaneous
  Country: US (occurrence: US)
  Receive Date: 20131223
  Receipt Date: 20140225
  Transmission Date: 20141002
  Serious: Yes (Other)
  Sender: FDA-Public Use
  Company Number: US-GLAXOSMITHKLINE-A1054388A

PATIENT
  Sex: Female

DRUGS (2)
  1. NICORETTE NICOTINE POLACRILEX MINT LOZENGE, 2MG [Suspect]
     Indication: SMOKING CESSATION THERAPY
     Route: 002
     Dates: start: 201308
  2. NICORETTE OTC GUM, ORIGINAL [Concomitant]
     Route: 002

REACTIONS (4)
  - Tooth abscess [Unknown]
  - Tooth loss [Not Recovered/Not Resolved]
  - Loose tooth [Unknown]
  - Nicotine dependence [Not Recovered/Not Resolved]
